FAERS Safety Report 5198098-9 (Version None)
Quarter: 2006Q4

REPORT INFORMATION
  Report Type: 
  Country: None (occurrence: None)
  Receive Date: 20061228
  Receipt Date: 20061228
  Transmission Date: 20070319
  Serious: Yes (Other)
  Sender: FDA-Public Use
  Company Number: None

PATIENT
  Age: 41 Year
  Sex: Male
  Weight: 80.7403 kg

DRUGS (1)
  1. RITE AID NASAL SPRAY/OXYMETAZOLINE [Suspect]
     Indication: NASAL CONGESTION
     Dosage: ONE PUMP -SPRAY  ONCE PER DAY NASAL
     Route: 045
     Dates: start: 20061226, end: 20061227

REACTIONS (1)
  - HEADACHE [None]
